FAERS Safety Report 8942904 (Version 4)
Quarter: 2013Q4

REPORT INFORMATION
  Report Type: Spontaneous
  Country: GB (occurrence: GB)
  Receive Date: 20121204
  Receipt Date: 20131009
  Transmission Date: 20140711
  Serious: Yes (Hospitalization, Other)
  Sender: FDA-Public Use
  Company Number: GB-RANBAXY-2012R1-62744

PATIENT
  Age: 38 Year
  Sex: Male
  Weight: 88.8 kg

DRUGS (7)
  1. DOXYCYCLINE [Suspect]
     Indication: URINARY TRACT INFECTION
     Dosage: UNK
     Route: 065
     Dates: start: 201111
  2. MINOCYCLINE [Suspect]
     Indication: PRODUCT USED FOR UNKNOWN INDICATION
     Dosage: UNK
     Route: 065
  3. OMEPRAZOLE [Suspect]
     Indication: ABDOMINAL PAIN
     Dosage: UNK
     Route: 065
     Dates: start: 201106
  4. SEROQUEL [Suspect]
     Indication: ANXIETY
     Dosage: UNK
     Route: 065
  5. CIPROFLOXACIN [Suspect]
     Indication: PRODUCT USED FOR UNKNOWN INDICATION
     Dosage: UNK
     Route: 065
     Dates: start: 201206
  6. NITROFURANTOIN [Suspect]
     Indication: PRODUCT USED FOR UNKNOWN INDICATION
     Dosage: UNK
     Route: 065
     Dates: start: 201204, end: 201210
  7. LAXIDO [Concomitant]
     Indication: PRODUCT USED FOR UNKNOWN INDICATION
     Dosage: UNK
     Route: 065

REACTIONS (33)
  - Dehydration [Unknown]
  - Skin depigmentation [Unknown]
  - Malaise [Unknown]
  - Skin exfoliation [Unknown]
  - Gastrooesophageal reflux disease [Unknown]
  - Hair colour changes [Unknown]
  - Alopecia [Unknown]
  - Headache [Unknown]
  - Tooth injury [Unknown]
  - Drug ineffective [Unknown]
  - Melanocytic naevus [Unknown]
  - Abdominal discomfort [Unknown]
  - Gastric ulcer [Unknown]
  - Photosensitivity reaction [Unknown]
  - Chromaturia [Unknown]
  - Mass [Unknown]
  - Skin discolouration [Unknown]
  - Bone pain [Unknown]
  - Dental caries [Unknown]
  - Protein total abnormal [Not Recovered/Not Resolved]
  - Tendonitis [Unknown]
  - Breast inflammation [Unknown]
  - Toxicity to various agents [Not Recovered/Not Resolved]
  - Thirst [Unknown]
  - Gastrointestinal disorder [Unknown]
  - Hair disorder [Unknown]
  - Nausea [Unknown]
  - Skin disorder [Unknown]
  - Prostatic disorder [Unknown]
  - Gastritis [Not Recovered/Not Resolved]
  - Visual impairment [Unknown]
  - Vomiting [Unknown]
  - Tendon disorder [Unknown]
